FAERS Safety Report 4731838-9 (Version None)
Quarter: 2005Q3

REPORT INFORMATION
  Report Type: 
  Country: None (occurrence: None)
  Receive Date: 20050802
  Receipt Date: 20050802
  Transmission Date: 20060218
  Serious: Yes (Disabling)
  Sender: FDA-Public Use
  Company Number: None

PATIENT
  Age: 48 Year
  Sex: Female
  Weight: 54.4316 kg

DRUGS (2)
  1. LEVAQUIN [Suspect]
     Indication: URINARY TRACT INFECTION
     Dosage: 500    DAY    ORAL
     Route: 048
     Dates: start: 20050405, end: 20050409
  2. LEVAQUIN [Suspect]
     Indication: ABDOMINAL INFECTION
     Dosage: ORAL
     Route: 048
     Dates: start: 20040310, end: 20040323

REACTIONS (4)
  - DIFFICULTY IN WALKING [None]
  - IMPAIRED WORK ABILITY [None]
  - MUSCULAR WEAKNESS [None]
  - TENDON DISORDER [None]
